FAERS Safety Report 4620218-2 (Version None)
Quarter: 2005Q1

REPORT INFORMATION
  Report Type: 
  Country: None (occurrence: None)
  Receive Date: 20050324
  Receipt Date: 20050317
  Transmission Date: 20050727
  Serious: No
  Sender: FDA-Public Use
  Company Number: 2005PK00363

PATIENT
  Age: 11 Year
  Sex: Female
  Weight: 35.2 kg

DRUGS (5)
  1. MERREM [Suspect]
     Indication: NEUTROPENIA
     Dosage: 20 MG/KG TID IV
     Route: 042
     Dates: start: 20050210, end: 20050223
  2. MERREM [Suspect]
     Indication: PYREXIA
     Dosage: 20 MG/KG TID IV
     Route: 042
     Dates: start: 20050210, end: 20050223
  3. TARGOCID [Concomitant]
  4. FUNGITZONE [Concomitant]
  5. AMBISOME [Concomitant]

REACTIONS (5)
  - CHILLS [None]
  - COUGH [None]
  - EXANTHEM [None]
  - FLUSHING [None]
  - JARISCH-HERXHEIMER REACTION [None]
